FAERS Safety Report 7234828-X (Version None)
Quarter: 2011Q1

REPORT INFORMATION
  Report Type: 
  Country: None (occurrence: None)
  Receive Date: 20110114
  Receipt Date: 20110114
  Transmission Date: 20110831
  Serious: Yes (Hospitalization, Disabling)
  Sender: FDA-Public Use
  Company Number: None

PATIENT
  Age: 47 Year
  Sex: Female
  Weight: 74.8435 kg

DRUGS (1)
  1. PREDNISONE [Suspect]
     Indication: MULTIPLE SCLEROSIS RELAPSE
     Dosage: PREDNISONE PO
     Route: 048
     Dates: start: 20000101, end: 20000107

REACTIONS (2)
  - OSTEONECROSIS [None]
  - MULTIPLE SCLEROSIS RELAPSE [None]
